FAERS Safety Report 5379175-6 (Version None)
Quarter: 2007Q2

REPORT INFORMATION
  Report Type: 
  Country: None (occurrence: None)
  Receive Date: 20070530
  Receipt Date: 20070221
  Transmission Date: 20071010
  Serious: No
  Sender: FDA-Public Use
  Company Number: 2007PV030478

PATIENT
  Sex: Female

DRUGS (1)
  1. BYETTA [Suspect]
     Indication: DRUG USE FOR UNKNOWN INDICATION
     Dosage: 5 MCG;BID;SC
     Route: 058
     Dates: start: 20070219

REACTIONS (5)
  - CHILLS [None]
  - DIARRHOEA [None]
  - HYPERAESTHESIA [None]
  - HYPERHIDROSIS [None]
  - NAUSEA [None]
